FAERS Safety Report 5061012-0 (Version None)
Quarter: 2006Q3

REPORT INFORMATION
  Report Type: 
  Country: None (occurrence: None)
  Receive Date: 20060720
  Receipt Date: 20060720
  Transmission Date: 20061208
  Serious: Yes (Other)
  Sender: FDA-Public Use
  Company Number: None

PATIENT
  Sex: Female
  Weight: 63.5036 kg

DRUGS (1)
  1. SEASONALE [Suspect]
     Indication: CONTRACEPTION
     Dosage: 1 A DAY PO
     Route: 048
     Dates: start: 20040301, end: 20051001

REACTIONS (2)
  - ABDOMINAL PAIN LOWER [None]
  - IRRITABLE BOWEL SYNDROME [None]
